FAERS Safety Report 6114233-X (Version None)
Quarter: 2009Q1

REPORT INFORMATION
  Report Type: 
  Country: None (occurrence: None)
  Receive Date: 20090312
  Receipt Date: 20080807
  Transmission Date: 20090719
  Serious: No
  Sender: FDA-Public Use
  Company Number: US-ABBOTT-08P-163-0469490-00

PATIENT
  Age: 49 Year
  Sex: Female

DRUGS (2)
  1. DEPAKOTE [Suspect]
     Indication: ABNORMAL BEHAVIOUR
     Route: 048
     Dates: start: 20080728, end: 20080731
  2. INVEGA [Concomitant]
     Indication: DRUG USE FOR UNKNOWN INDICATION
     Dates: start: 20080701, end: 20080731

REACTIONS (2)
  - BLOOD ALBUMIN DECREASED [None]
  - BLOOD ALKALINE PHOSPHATASE INCREASED [None]
